FAERS Safety Report 19312297 (Version 2)
Quarter: 2022Q4

REPORT INFORMATION
  Report Type: Spontaneous
  Country: US (occurrence: US)
  Receive Date: 20210527
  Receipt Date: 20221012
  Transmission Date: 20230112
  Serious: Yes (Other)
  Sender: FDA-Public Use
  Company Number: US-SA-SAC20210521001248

PATIENT
  Age: 40 Year
  Sex: Female

DRUGS (1)
  1. ZANTAC [Suspect]
     Active Substance: RANITIDINE HYDROCHLORIDE
     Indication: Dyspepsia
     Dosage: UNK, QD
     Route: 065
     Dates: start: 200301, end: 201701

REACTIONS (2)
  - Hepatic cancer stage II [Unknown]
  - Pancreatic carcinoma stage III [Unknown]

NARRATIVE: CASE EVENT DATE: 20190101
